FAERS Safety Report 10422511 (Version 1)
Quarter: 2014Q3

REPORT INFORMATION
  Report Type: Report from Study
  Country: BR (occurrence: BR)
  Receive Date: 20140901
  Receipt Date: 20140901
  Transmission Date: 20150326
  Serious: Yes (Other)
  Sender: FDA-Public Use
  Company Number: PHHY2014BR109780

PATIENT
  Sex: Male

DRUGS (1)
  1. EXELON [Suspect]
     Active Substance: RIVASTIGMINE TARTRATE
     Dosage: UNK UKN, UNK

REACTIONS (6)
  - Fall [Unknown]
  - Joint injury [Unknown]
  - Mental disorder [Unknown]
  - Rib fracture [Unknown]
  - Spinal column injury [Unknown]
  - Speech disorder [Unknown]
